FAERS Safety Report 10149702 (Version 1)
Quarter: 2014Q2

REPORT INFORMATION
  Report Type: Spontaneous
  Country: US (occurrence: None)
  Receive Date: 20140501
  Receipt Date: 20140501
  Transmission Date: 20141212
  Serious: Yes (Hospitalization)
  Sender: FDA-Public Use
  Company Number: None

PATIENT
  Age: 38 Year
  Sex: Male

DRUGS (2)
  1. PHENYTOIN [Suspect]
     Indication: CONVULSION PROPHYLAXIS
     Route: 048
     Dates: start: 20130905
  2. PREDNISONE [Suspect]

REACTIONS (8)
  - Gait disturbance [None]
  - Dizziness [None]
  - Paraesthesia [None]
  - Muscular weakness [None]
  - Convulsion [None]
  - Dizziness [None]
  - Balance disorder [None]
  - Toxicity to various agents [None]
